FAERS Safety Report 13800530 (Version 1)
Quarter: 2017Q3

REPORT INFORMATION
  Report Type: Spontaneous
  Country: MA (occurrence: MA)
  Receive Date: 20170727
  Receipt Date: 20170727
  Transmission Date: 20171127
  Serious: Yes (Life-Threatening)
  Sender: FDA-Public Use
  Company Number: MA-ALVA-AMCO PHARMACAL COMPANIES, INC.-2023842

PATIENT
  Age: 47 Year
  Sex: Male

DRUGS (1)
  1. FUNGICURE LIQUID GEL [Suspect]
     Active Substance: CLOTRIMAZOLE
     Indication: FUNGAL SKIN INFECTION
     Route: 061
     Dates: start: 2016, end: 2016

REACTIONS (2)
  - Arterial stenosis [Recovered/Resolved]
  - Myocardial infarction [None]

NARRATIVE: CASE EVENT DATE: 201608
